FAERS Safety Report 19403331 (Version 1)
Quarter: 2021Q2

REPORT INFORMATION
  Report Type: Spontaneous
  Country: US (occurrence: US)
  Receive Date: 20210610
  Receipt Date: 20210610
  Transmission Date: 20210717
  Serious: No
  Sender: FDA-Public Use
  Company Number: US-GALDERMA-US2021006726

PATIENT
  Age: 86 Year
  Sex: Female
  Weight: 58.96 kg

DRUGS (3)
  1. CALCITRIOL (CALCITRIOL) OINTMENT 3 MCG/G [Suspect]
     Active Substance: CALCITRIOL
     Indication: RASH PAPULAR
     Dosage: 1/2 INCH, BID
     Route: 061
     Dates: start: 20210125, end: 20210304
  2. CLOBETASOL PROPIONATE (CLOBETASOL PROPIONATE) [Suspect]
     Active Substance: CLOBETASOL PROPIONATE
     Indication: PRODUCT USED FOR UNKNOWN INDICATION
     Route: 065
     Dates: start: 202101
  3. CALCITRIOL (CALCITRIOL) OINTMENT 3 MCG/G [Suspect]
     Active Substance: CALCITRIOL
     Indication: PSORIASIS
     Route: 067
     Dates: start: 20210125, end: 20210304

REACTIONS (5)
  - Blister [Recovering/Resolving]
  - Intentional product use issue [Recovered/Resolved]
  - Product use issue [Recovered/Resolved]
  - Musculoskeletal pain [Recovering/Resolving]
  - Blister infected [Recovered/Resolved]

NARRATIVE: CASE EVENT DATE: 20210125
